FAERS Safety Report 6270076-8 (Version None)
Quarter: 2009Q3

REPORT INFORMATION
  Report Type: 
  Country: None (occurrence: None)
  Receive Date: 20090716
  Receipt Date: 20090706
  Transmission Date: 20100115
  Serious: Yes (Other)
  Sender: FDA-Public Use
  Company Number: US-BAYER-200911978BCC

PATIENT
  Age: 66 Year
  Sex: Male

DRUGS (1)
  1. ASPIRIN [Suspect]
     Indication: UNEVALUABLE EVENT
     Route: 048

REACTIONS (1)
  - GASTROINTESTINAL ULCER [None]
